FAERS Safety Report 21801779 (Version 1)
Quarter: 2022Q4

REPORT INFORMATION
  Report Type: Report from Study
  Country: AU (occurrence: AU)
  Receive Date: 20221230
  Receipt Date: 20221230
  Transmission Date: 20230113
  Serious: Yes (Other)
  Sender: FDA-Public Use
  Company Number: AU-ALLERGAN-2242329US

PATIENT

DRUGS (1)
  1. DEXAMETHASONE [Suspect]
     Active Substance: DEXAMETHASONE
     Indication: Diabetic retinal oedema
     Dosage: 0.7 MG, SINGLE
     Route: 031

REACTIONS (1)
  - Visual impairment [Unknown]
